FAERS Safety Report 11998890 (Version 1)
Quarter: 2016Q1

REPORT INFORMATION
  Report Type: Spontaneous
  Country: None (occurrence: None)
  Receive Date: 20160203
  Receipt Date: 20160203
  Transmission Date: 20160526
  Serious: No
  Sender: FDA-Public Use
  Company Number: None

PATIENT
  Age: 54 Year
  Sex: Male
  Weight: 91.17 kg

DRUGS (9)
  1. DEFINITY [Suspect]
     Active Substance: PERFLUTREN
     Indication: STRESS ECHOCARDIOGRAM
     Route: 042
     Dates: start: 20160202, end: 20160202
  2. ASACOL [Concomitant]
     Active Substance: MESALAMINE
  3. CRESTOR [Concomitant]
     Active Substance: ROSUVASTATIN CALCIUM
  4. MVI [Concomitant]
     Active Substance: VITAMINS
  5. IMDUR [Concomitant]
     Active Substance: ISOSORBIDE MONONITRATE
  6. FOLIC ACID. [Concomitant]
     Active Substance: FOLIC ACID
  7. PREVACID [Concomitant]
     Active Substance: LANSOPRAZOLE
  8. ASA [Concomitant]
     Active Substance: ASPIRIN
  9. TRAZODONE [Concomitant]
     Active Substance: TRAZODONE HYDROCHLORIDE

REACTIONS (1)
  - Back pain [None]

NARRATIVE: CASE EVENT DATE: 20160202
